FAERS Safety Report 8036607-2 (Version None)
Quarter: 2012Q1

REPORT INFORMATION
  Report Type: 
  Country: None (occurrence: None)
  Receive Date: 20120111
  Receipt Date: 20111230
  Transmission Date: 20120608
  Serious: Yes (Death)
  Sender: FDA-Public Use
  Company Number: PHEH2011US012586

PATIENT
  Sex: Female

DRUGS (11)
  1. TYSABRI [Suspect]
     Dosage: UNK UKN, UNK
  2. BACLOFEN [Suspect]
     Dosage: UNK UKN, UNK
  3. SINGULAIR [Suspect]
     Dosage: 10 MG, QD
  4. AMPHETAMINE AND DEXTROAMPHETAMINE SALTS [Suspect]
     Dosage: 10 MG, BID
  5. ZANAFLEX [Suspect]
     Indication: MUSCLE RELAXANT THERAPY
     Dosage: UNK
  6. DIAZEPAM [Suspect]
     Dosage: 10 MG, BID
  7. ACETAMINOPHEN AND HYDROCODONE BITARTRATE [Suspect]
     Indication: PAIN
     Dosage: 10/500 MG
  8. GILENYA [Suspect]
     Route: 048
  9. PHYSICAL THERAPY [Concomitant]
     Dosage: UNK UKN, UNK
  10. GABAPENTIN [Suspect]
     Dosage: 300 MG, QID
     Route: 048
  11. CITALOPRAM [Suspect]
     Indication: DEPRESSION
     Dosage: 20 MG, UNK

REACTIONS (2)
  - ASTHENIA [None]
  - DEATH [None]
